FAERS Safety Report 21210180 (Version 3)
Quarter: 2022Q4

REPORT INFORMATION
  Report Type: Spontaneous
  Country: US (occurrence: None)
  Receive Date: 20220814
  Receipt Date: 20221006
  Transmission Date: 20230113
  Serious: No
  Sender: FDA-Public Use
  Company Number: 2022A281347

PATIENT
  Age: 26028 Day
  Sex: Male
  Weight: 73.5 kg

DRUGS (2)
  1. BYDUREON BCISE [Suspect]
     Active Substance: EXENATIDE
     Indication: Diabetes mellitus
     Route: 058
     Dates: start: 20220730
  2. IMBRUVICA [Concomitant]
     Active Substance: IBRUTINIB
     Route: 065

REACTIONS (3)
  - Injection site haemorrhage [Not Recovered/Not Resolved]
  - Device malfunction [Unknown]
  - Device issue [Unknown]

NARRATIVE: CASE EVENT DATE: 20220806
